FAERS Safety Report 8317801-X (Version None)
Quarter: 2012Q2

REPORT INFORMATION
  Report Type: 
  Country: None (occurrence: None)
  Receive Date: 20120427
  Receipt Date: 20120418
  Transmission Date: 20120825
  Serious: Yes (Hospitalization)
  Sender: FDA-Public Use
  Company Number: US-BAYER-2012-002941

PATIENT
  Age: 20 Year
  Sex: Female
  Weight: 45.351 kg

DRUGS (11)
  1. NAPROXEN [Concomitant]
     Dosage: UNK
     Dates: start: 19910101
  2. LAXATIVES [Concomitant]
  3. CIPROFLOXACIN [Concomitant]
     Dosage: UNK
     Dates: start: 20040624
  4. CIPROFLOXACIN [Concomitant]
     Dosage: UNK
     Dates: start: 20040809
  5. PROPOXYPHENE HYDROCHLORIDE [Concomitant]
     Dosage: UNK
     Dates: start: 20040713
  6. ZITHROMAX [Concomitant]
     Dosage: UNK
     Dates: start: 20040713
  7. YASMIN [Suspect]
     Dosage: UNK
     Dates: start: 20020101
  8. IBUPROFEN [Concomitant]
     Dosage: UNK
     Dates: start: 19910101
  9. THEOPHYLLINE [Concomitant]
     Indication: ASTHMA
     Dosage: UNK
     Dates: start: 19980101
  10. MOTRIN [Concomitant]
     Dosage: UNK
     Dates: start: 19910101
  11. ALBUTEROL [Concomitant]
     Indication: ASTHMA
     Dosage: UNK
     Dates: start: 19980101

REACTIONS (5)
  - EMOTIONAL DISTRESS [None]
  - GENERAL PHYSICAL HEALTH DETERIORATION [None]
  - PAIN [None]
  - GALLBLADDER INJURY [None]
  - ANXIETY [None]
